FAERS Safety Report 9433252 (Version 1)
Quarter: 2013Q3

REPORT INFORMATION
  Report Type: Spontaneous
  Country: FR (occurrence: FR)
  Receive Date: 20130731
  Receipt Date: 20130731
  Transmission Date: 20140515
  Serious: Yes (Hospitalization)
  Sender: FDA-Public Use
  Company Number: FR-GLAXOSMITHKLINE-B0910002A

PATIENT
  Age: 33 Year
  Sex: Male

DRUGS (1)
  1. ARIXTRA [Suspect]
     Indication: PRODUCT USED FOR UNKNOWN INDICATION
     Dosage: 7.5MG UNKNOWN
     Route: 058
     Dates: start: 201212, end: 20130121

REACTIONS (4)
  - Abdominal wall haematoma [Recovered/Resolved]
  - Abdominal pain [Unknown]
  - Shock haemorrhagic [Unknown]
  - Incorrect drug administration duration [Unknown]
